FAERS Safety Report 7638202-3 (Version None)
Quarter: 2011Q3

REPORT INFORMATION
  Report Type: 
  Country: None (occurrence: None)
  Receive Date: 20110720
  Receipt Date: 20110614
  Transmission Date: 20111222
  Serious: Yes (Hospitalization)
  Sender: FDA-Public Use
  Company Number: 2011070083

PATIENT
  Age: 41 Year
  Sex: Male

DRUGS (2)
  1. OXYMETHOLONE (OXYMETHOLONE) [Suspect]
  2. METHENOLONE (METHENOLONE) [Suspect]

REACTIONS (3)
  - HIGH DENSITY LIPOPROTEIN DECREASED [None]
  - BLOOD CREATININE INCREASED [None]
  - ACUTE MYOCARDIAL INFARCTION [None]
